FAERS Safety Report 5000115-3 (Version None)
Quarter: 2006Q2

REPORT INFORMATION
  Report Type: 
  Country: None (occurrence: None)
  Receive Date: 20060509
  Receipt Date: 20060425
  Transmission Date: 20061013
  Serious: Yes (Other)
  Sender: FDA-Public Use
  Company Number: DE200604004318

PATIENT
  Sex: Female

DRUGS (9)
  1. CYMBALTA [Suspect]
     Dosage: 30 MG, DAILY (1/D), ORAL
     Route: 048
     Dates: start: 20060418, end: 20060421
  2. MIRTAZAPINE [Concomitant]
  3. EDRONAX (REBOXETINE) [Concomitant]
  4. NOVALGIN/SCH/(METAMIZOLE SODIUM MONOHYDRATE) [Concomitant]
  5. ASS ^ISIS^ (ACETYLSALICYLIC ACID) [Concomitant]
  6. SOTAHEXAL (SOTALOL HYDROCHLORIDE) [Concomitant]
  7. CARBIMAZOLE (CARBIMAZOLE) [Concomitant]
  8. ARICEPT/JPN/(DONEPEZIL HYDROCHLORIDE) [Concomitant]
  9. EUTHYROXI (LEVOTHYROXINE SODIUM) [Concomitant]

REACTIONS (5)
  - CHILLS [None]
  - DELIRIUM [None]
  - DYSPHAGIA [None]
  - EXTRAPYRAMIDAL DISORDER [None]
  - URINARY RETENTION [None]
